FAERS Safety Report 21358644 (Version 2)
Quarter: 2022Q4

REPORT INFORMATION
  Report Type: Spontaneous
  Country: DE (occurrence: DE)
  Receive Date: 20220921
  Receipt Date: 20221018
  Transmission Date: 20230112
  Serious: Yes (Hospitalization, Other)
  Sender: FDA-Public Use
  Company Number: DE-ADRED-05699-01

PATIENT
  Age: 71 Year
  Sex: Female
  Weight: 70 kg

DRUGS (4)
  1. RASAGILINE [Suspect]
     Active Substance: RASAGILINE
     Indication: Product used for unknown indication
     Dosage: 1 MILLIGRAM (1-0-0-0, TABLETTEN)
     Route: 048
  2. AMANTADINE [Concomitant]
     Active Substance: AMANTADINE
     Indication: Product used for unknown indication
     Dosage: 100 MILLIGRAM (1.5-1-0-0, TABLETTEN)
     Route: 048
  3. PRAMIPEXOLE [Concomitant]
     Active Substance: PRAMIPEXOLE
     Indication: Product used for unknown indication
     Dosage: 1.57 MILLIGRAM (1-0-0-0, RETARD-TABLETTEN)
     Route: 048
  4. PRAMIPEXOLE [Concomitant]
     Active Substance: PRAMIPEXOLE
     Dosage: 1.05 MILLIGRAM (1-0-0-1, RETARD-TABLETTEN)
     Route: 048

REACTIONS (5)
  - Pneumonia [Unknown]
  - Influenza [Unknown]
  - General physical health deterioration [Unknown]
  - Decreased appetite [Unknown]
  - Cough [Unknown]
